FAERS Safety Report 19436105 (Version 1)
Quarter: 2021Q2

REPORT INFORMATION
  Report Type: Spontaneous
  Country: CA (occurrence: CA)
  Receive Date: 20210618
  Receipt Date: 20210618
  Transmission Date: 20210717
  Serious: Yes (Hospitalization)
  Sender: FDA-Public Use
  Company Number: CA-ACCORD-227870

PATIENT
  Age: 56 Year
  Sex: Female

DRUGS (12)
  1. CENTRUM ADVANTAGE [Concomitant]
     Active Substance: VITAMINS
  2. NORVASC [Concomitant]
     Active Substance: AMLODIPINE BESYLATE
  3. CARBOPLATIN. [Suspect]
     Active Substance: CARBOPLATIN
     Indication: ENDOMETRIAL ADENOCARCINOMA
     Dosage: SOLUTION INTRAVENOUS
  4. STEMETIL [Concomitant]
     Active Substance: PROCHLORPERAZINE
  5. GRASTOFIL [Concomitant]
     Active Substance: FILGRASTIM
     Dosage: SINGLE USE PRE?FILLED SYRINGE?SOLUTION INTRAVENOUS
  6. STATEX [Concomitant]
     Dosage: NOT SPECIFIED
  7. LAX?A?DAY [Concomitant]
     Active Substance: POLYETHYLENE GLYCOL 3350
     Dosage: POWDER FOR SOLUTION ORAL
  8. DECADRON [Concomitant]
     Active Substance: DEXAMETHASONE
     Dosage: NOT SPECIFIED
  9. TAXOL [Suspect]
     Active Substance: PACLITAXEL
     Indication: ENDOMETRIAL ADENOCARCINOMA
     Dosage: SOLUTION INTRAVENOUS
  10. CALCIUM CARBONATE. [Concomitant]
     Active Substance: CALCIUM CARBONATE
     Dosage: LIQUID ORAL
  11. VENTOLIN [Concomitant]
     Active Substance: ALBUTEROL SULFATE
     Dosage: NOT SPECIFIED
     Route: 055
  12. PYRIDOXINE [Concomitant]
     Active Substance: PYRIDOXINE
     Dosage: NOT SPECIFIED

REACTIONS (7)
  - Chemical burn [Recovered/Resolved with Sequelae]
  - Skin graft [Recovered/Resolved with Sequelae]
  - Debridement [Recovered/Resolved with Sequelae]
  - Device issue [Unknown]
  - Skin necrosis [Recovered/Resolved with Sequelae]
  - Superinfection bacterial [Recovered/Resolved with Sequelae]
  - Catheter site extravasation [Recovered/Resolved with Sequelae]
